FAERS Safety Report 13122545 (Version 1)
Quarter: 2017Q1

REPORT INFORMATION
  Report Type: Spontaneous
  Country: SE (occurrence: SE)
  Receive Date: 20170117
  Receipt Date: 20170117
  Transmission Date: 20170428
  Serious: Yes (Other)
  Sender: FDA-Public Use
  Company Number: SE-TEVA-730106ISR

PATIENT
  Age: 39 Year
  Sex: Female

DRUGS (5)
  1. RESOLOR [Suspect]
     Active Substance: PRUCALOPRIDE SUCCINATE
  2. RESOLOR [Suspect]
     Active Substance: PRUCALOPRIDE SUCCINATE
  3. SERTRALINE [Interacting]
     Active Substance: SERTRALINE HYDROCHLORIDE
     Route: 065
  4. CITALOPRAM [Suspect]
     Active Substance: CITALOPRAM HYDROBROMIDE
     Route: 065
  5. RESOLOR [Suspect]
     Active Substance: PRUCALOPRIDE SUCCINATE

REACTIONS (6)
  - Somnolence [Not Recovered/Not Resolved]
  - Dizziness [Not Recovered/Not Resolved]
  - Diarrhoea [Not Recovered/Not Resolved]
  - Headache [Not Recovered/Not Resolved]
  - Panic attack [Not Recovered/Not Resolved]
  - Drug interaction [Not Recovered/Not Resolved]
